FAERS Safety Report 9471462 (Version 1)
Quarter: 2013Q3

REPORT INFORMATION
  Report Type: Spontaneous
  Country: GB (occurrence: GB)
  Receive Date: 20130822
  Receipt Date: 20130822
  Transmission Date: 20140515
  Serious: Yes (Death)
  Sender: FDA-Public Use
  Company Number: GB-ROXANE LABORATORIES, INC.-2013-RO-01376RO

PATIENT
  Age: 17 Year
  Sex: Female

DRUGS (3)
  1. CODEINE SULFATE [Suspect]
  2. PARACETAMOL [Suspect]
  3. CANNABINOIDS [Suspect]

REACTIONS (2)
  - Acute myocardial infarction [Fatal]
  - Overdose [Fatal]
